FAERS Safety Report 6859130-7 (Version None)
Quarter: 2010Q3

REPORT INFORMATION
  Report Type: 
  Country: None (occurrence: None)
  Receive Date: 20100719
  Receipt Date: 20080222
  Transmission Date: 20110219
  Serious: No
  Sender: FDA-Public Use
  Company Number: US-PFIZER INC-2008018987

PATIENT
  Sex: Male
  Weight: 91.818 kg

DRUGS (5)
  1. CHANTIX [Suspect]
     Indication: SMOKING CESSATION THERAPY
     Dosage: EVERY DAY
     Route: 048
     Dates: start: 20070101, end: 20080201
  2. WELLBUTRIN [Concomitant]
     Dosage: DAILY
  3. LEXAPRO [Concomitant]
     Dosage: DAILY
  4. VYTORIN [Concomitant]
     Dosage: 10-40,DAILY
  5. TRAZODONE HYDROCHLORIDE [Concomitant]
     Dosage: NIGHTLY

REACTIONS (2)
  - DIZZINESS [None]
  - LETHARGY [None]
